FAERS Safety Report 7346268-3 (Version None)
Quarter: 2011Q1

REPORT INFORMATION
  Report Type: 
  Country: None (occurrence: None)
  Receive Date: 20110311
  Receipt Date: 20110307
  Transmission Date: 20110831
  Serious: Yes (Other)
  Sender: FDA-Public Use
  Company Number: US-PFIZER INC-2011029647

PATIENT
  Sex: Female
  Weight: 61.22 kg

DRUGS (8)
  1. NORTRIPTYLINE [Concomitant]
     Dosage: 75 MG, 1X/DAY
     Route: 048
  2. LYRICA [Suspect]
     Indication: PAIN
  3. OMEPRAZOLE [Concomitant]
     Dosage: 20 MG, 2X/DAY
     Route: 048
  4. LYRICA [Suspect]
     Indication: HEADACHE
     Dosage: 25 MG, 1X/DAY, AT BEDTIME
     Route: 048
     Dates: start: 20110113
  5. MORPHINE [Concomitant]
     Indication: PAIN
     Dosage: 15 MG, 3X/DAY
  6. CARISOPRODOL [Concomitant]
     Dosage: 350 MG, 3X/DAY
     Route: 048
  7. LORATADINE [Concomitant]
     Dosage: 10 MG, 1X/DAY
     Route: 048
  8. LOVASTATIN [Concomitant]
     Dosage: 40 MG, 1X/DAY
     Route: 048

REACTIONS (2)
  - VISION BLURRED [None]
  - DIPLOPIA [None]
